FAERS Safety Report 6312354-X (Version None)
Quarter: 2009Q3

REPORT INFORMATION
  Report Type: 
  Country: None (occurrence: None)
  Receive Date: 20090817
  Receipt Date: 20090811
  Transmission Date: 20100115
  Serious: Yes (Hospitalization)
  Sender: FDA-Public Use
  Company Number: PHHO2009SE09912

PATIENT
  Sex: Female

DRUGS (6)
  1. NEORAL [Suspect]
     Indication: RENAL TRANSPLANT
     Dosage: UNK
     Route: 048
  2. NO TREATMENT RECEIVED NOMED [Suspect]
     Indication: RENAL TRANSPLANT
     Dosage: NO TREATMENT
  3. MYFORTIC [Concomitant]
     Indication: RENAL TRANSPLANT
     Dosage: 720 MG, BID
     Route: 048
     Dates: end: 20090217
  4. MYFORTIC [Concomitant]
     Dosage: 360 MG, BID
     Route: 048
     Dates: start: 20090221, end: 20090227
  5. PREDNISOLONE [Concomitant]
     Indication: RENAL TRANSPLANT
     Dosage: 20 MG, QD
     Dates: start: 20090220
  6. IMUREL [Concomitant]

REACTIONS (5)
  - CARBUNCLE [None]
  - GROIN PAIN [None]
  - LEUKOPENIA [None]
  - NEUTROPENIA [None]
  - PYREXIA [None]
